FAERS Safety Report 11227165 (Version 1)
Quarter: 2015Q2

REPORT INFORMATION
  Report Type: Spontaneous
  Country: CA (occurrence: None)
  Receive Date: 20150626
  Receipt Date: 20150626
  Transmission Date: 20150821
  Serious: Yes (Hospitalization)
  Sender: FDA-Public Use
  Company Number: None

PATIENT
  Age: 54 Year
  Sex: Male
  Weight: 70.8 kg

DRUGS (10)
  1. PLAVIX [Concomitant]
     Active Substance: CLOPIDOGREL BISULFATE
  2. OMEPRAZOLE (PRILOSEC) [Concomitant]
  3. DAPAGLIFOZIN [Concomitant]
  4. LIPITOR [Concomitant]
     Active Substance: ATORVASTATIN CALCIUM
  5. INSULIN LISPRO (HUMALOG) [Concomitant]
  6. LANTUS [Concomitant]
     Active Substance: INSULIN GLARGINE
  7. AMLODIPINE (NORVASC) [Concomitant]
  8. FARXIGA [Suspect]
     Active Substance: DAPAGLIFLOZIN PROPANEDIOL
     Indication: TYPE 2 DIABETES MELLITUS
     Route: 048
     Dates: start: 20150615, end: 20150623
  9. ONDANSETRON (ZOFRAN-ODT) [Concomitant]
  10. RAMIPRIL (ALTACE) [Concomitant]

REACTIONS (2)
  - Acute kidney injury [None]
  - Diabetic ketoacidosis [None]

NARRATIVE: CASE EVENT DATE: 20150623
